FAERS Safety Report 6484015-8 (Version None)
Quarter: 2009Q4

REPORT INFORMATION
  Report Type: 
  Country: None (occurrence: None)
  Receive Date: 20091208
  Receipt Date: 20091208
  Transmission Date: 20100525
  Serious: No
  Sender: FDA-Public Use
  Company Number: None

PATIENT
  Sex: Female

DRUGS (1)
  1. RITUXIMAB 700 MG Q 4 MONTHS IV [Suspect]
     Indication: NEUROMYELITIS OPTICA
     Dosage: 700 MG Q4 MONTHS IV
     Route: 042
     Dates: start: 20070801

REACTIONS (3)
  - LICHENIFICATION [None]
  - MUCOSAL INFLAMMATION [None]
  - NEUROMYELITIS OPTICA [None]
